FAERS Safety Report 5512825-X (Version None)
Quarter: 2007Q4

REPORT INFORMATION
  Report Type: 
  Country: None (occurrence: None)
  Receive Date: 20071108
  Receipt Date: 20071102
  Transmission Date: 20080405
  Serious: Yes (Hospitalization, Disabling)
  Sender: FDA-Public Use
  Company Number: THQ2007A01056

PATIENT
  Age: 75 Year
  Sex: Female

DRUGS (8)
  1. LANSOPRAZOLE [Suspect]
     Indication: GASTROOESOPHAGEAL REFLUX DISEASE
     Dosage: 1 DOSE 1 X PER 1 TOT, 1 DOSE 1 X PER 1 TOT
     Dates: start: 20031101, end: 20031101
  2. LANSOPRAZOLE [Suspect]
     Indication: GASTROOESOPHAGEAL REFLUX DISEASE
     Dosage: 1 DOSE 1 X PER 1 TOT, 1 DOSE 1 X PER 1 TOT
     Dates: start: 20040401, end: 20040401
  3. LANSOPRAZOLE [Suspect]
     Indication: GASTROOESOPHAGEAL REFLUX DISEASE
     Dosage: 1 DOSE 1 X PER 1 TOT, 1 DOSE 1 X PER 1 TOT
     Dates: start: 20020301
  4. CARBAMAZEPINE [Concomitant]
  5. PENTOSAN POLYSULFATE [Concomitant]
  6. TOLTERODINE TARTRATE [Concomitant]
  7. DOTHIEPIN HYDROCHLORIDE [Concomitant]
  8. TRAMADOL [Concomitant]

REACTIONS (4)
  - CYSTITIS [None]
  - HAEMORRHAGE [None]
  - MICTURITION URGENCY [None]
  - POLLAKIURIA [None]
